FAERS Safety Report 7202347-2 (Version None)
Quarter: 2010Q4

REPORT INFORMATION
  Report Type: 
  Country: None (occurrence: None)
  Receive Date: 20101229
  Receipt Date: 20101215
  Transmission Date: 20110411
  Serious: No
  Sender: FDA-Public Use
  Company Number: US-PFIZER INC-2010173843

PATIENT
  Age: 73 Year
  Sex: Male
  Weight: 86.168 kg

DRUGS (7)
  1. ADVIL [Suspect]
     Indication: MUSCULOSKELETAL PAIN
     Dosage: 1-2 TAB QAMUNK
     Route: 048
     Dates: start: 20101205
  2. ALTACE [Concomitant]
  3. PROCARDIA XL [Concomitant]
  4. TOPROL-XL [Concomitant]
  5. PRAVACHOL [Concomitant]
  6. OLOPATADINE [Concomitant]
  7. NASONEX [Concomitant]

REACTIONS (1)
  - DRUG INEFFECTIVE [None]
